FAERS Safety Report 24442068 (Version 2)
Quarter: 2024Q4

REPORT INFORMATION
  Report Type: Report from Study
  Country: EG (occurrence: EG)
  Receive Date: 20241016
  Receipt Date: 20241017
  Transmission Date: 20250114
  Serious: No
  Sender: ROCHE
  Company Number: EG-ROCHE-3524576

PATIENT
  Age: 3 Year
  Sex: Male
  Weight: 20.0 kg

DRUGS (13)
  1. EMICIZUMAB [Suspect]
     Active Substance: EMICIZUMAB
     Indication: Factor VIII deficiency
     Route: 058
     Dates: start: 20230522
  2. EMICIZUMAB [Suspect]
     Active Substance: EMICIZUMAB
     Route: 058
     Dates: start: 20230612
  3. EMICIZUMAB [Suspect]
     Active Substance: EMICIZUMAB
     Dosage: SUBSEQUENT DOSE 18-SEP-2023, 2-OCT-2023, 16-OCT-2023, 30-OCT-2023, 13-NOV-2023, 27-NOV-2023, 11-DEC-
     Route: 058
     Dates: start: 20230903
  4. ANTIHEMOPHILIC FACTOR, HUMAN RECOMBINANT [Suspect]
     Active Substance: ANTIHEMOPHILIC FACTOR, HUMAN RECOMBINANT
     Indication: Factor VIII deficiency
     Dosage: 500 UNIT
     Route: 042
     Dates: start: 202107
  5. ANTIHEMOPHILIC FACTOR, HUMAN RECOMBINANT [Suspect]
     Active Substance: ANTIHEMOPHILIC FACTOR, HUMAN RECOMBINANT
     Dosage: 500 UNIT
     Route: 042
     Dates: start: 20221116
  6. COAGULATION FACTOR VIIA RECOMBINANT HUMAN [Suspect]
     Active Substance: COAGULATION FACTOR VIIA RECOMBINANT HUMAN
     Indication: Factor VIII deficiency
     Route: 042
     Dates: start: 20230829
  7. COAGULATION FACTOR VIIA RECOMBINANT HUMAN [Suspect]
     Active Substance: COAGULATION FACTOR VIIA RECOMBINANT HUMAN
     Route: 042
     Dates: start: 20230828
  8. COAGULATION FACTOR VIIA RECOMBINANT HUMAN [Suspect]
     Active Substance: COAGULATION FACTOR VIIA RECOMBINANT HUMAN
     Route: 042
     Dates: start: 20230828
  9. COAGULATION FACTOR VIIA RECOMBINANT HUMAN [Suspect]
     Active Substance: COAGULATION FACTOR VIIA RECOMBINANT HUMAN
     Route: 042
     Dates: start: 20230905
  10. IRON [Concomitant]
     Active Substance: IRON
     Indication: Anaemia
     Route: 048
     Dates: start: 20230409
  11. VITAMIN C [Concomitant]
     Active Substance: ASCORBIC ACID
     Indication: Anaemia
     Dosage: 100 MG / ML
     Route: 048
     Dates: start: 20230409
  12. AZITHROMYCIN [Concomitant]
     Active Substance: AZITHROMYCIN
     Route: 048
     Dates: start: 20231213, end: 20231216
  13. ALBUTEROL [Concomitant]
     Active Substance: ALBUTEROL
     Route: 045
     Dates: start: 20231213, end: 20231218

REACTIONS (1)
  - Bronchitis [Recovered/Resolved]

NARRATIVE: CASE EVENT DATE: 20231213
